FAERS Safety Report 6285912-9 (Version None)
Quarter: 2009Q3

REPORT INFORMATION
  Report Type: 
  Country: None (occurrence: None)
  Receive Date: 20090728
  Receipt Date: 20090720
  Transmission Date: 20100115
  Serious: Yes (Death, Life-Threatening, Hospitalization, Disabling, Other)
  Sender: FDA-Public Use
  Company Number: BR-BAYER-200918615LA

PATIENT
  Age: 52 Year
  Sex: Female
  Weight: 52 kg

DRUGS (4)
  1. BETAFERON [Suspect]
     Indication: MULTIPLE SCLEROSIS
     Route: 058
  2. HIDANTAL [Concomitant]
     Indication: ANXIOLYTIC THERAPY
     Route: 065
  3. PONDERA [Concomitant]
     Indication: ANXIOLYTIC THERAPY
     Route: 048
  4. RIVOTRIL [Concomitant]
     Indication: ANXIOLYTIC THERAPY
     Route: 065

REACTIONS (11)
  - ATROPHY [None]
  - BEDRIDDEN [None]
  - CARDIAC ARREST [None]
  - COMA [None]
  - LUNG DISORDER [None]
  - MULTIPLE SCLEROSIS [None]
  - NEPHROLITHIASIS [None]
  - PROCEDURAL COMPLICATION [None]
  - PULMONARY OEDEMA [None]
  - SEPSIS [None]
  - URINARY INCONTINENCE [None]
